FAERS Safety Report 7496111-7 (Version None)
Quarter: 2011Q2

REPORT INFORMATION
  Report Type: 
  Country: None (occurrence: None)
  Receive Date: 20110523
  Receipt Date: 20110510
  Transmission Date: 20111010
  Serious: Yes (Other)
  Sender: FDA-Public Use
  Company Number: PHHY2010CA66044

PATIENT
  Sex: Female

DRUGS (7)
  1. MAGNESIUM CITRATE [Concomitant]
  2. CALCIUM CARBONATE [Concomitant]
  3. NOVOPHENIRAM [Concomitant]
  4. ESTROGEN NOS [Concomitant]
  5. CLOMIPRAMINE HYDROCHLORIDE [Concomitant]
  6. ACLASTA [Suspect]
     Indication: OSTEOPOROSIS
     Dosage: 5 MG
     Route: 042
     Dates: start: 20100720
  7. MULTI-VITAMINS [Concomitant]

REACTIONS (4)
  - FIBROMYALGIA [None]
  - ARTHRALGIA [None]
  - LYMPHADENOPATHY [None]
  - PAIN [None]
